FAERS Safety Report 4877166-2 (Version None)
Quarter: 2005Q4

REPORT INFORMATION
  Report Type: 
  Country: None (occurrence: None)
  Receive Date: 20051206
  Receipt Date: 20050804
  Transmission Date: 20060501
  Serious: No
  Sender: FDA-Public Use
  Company Number: USA0508104622

PATIENT
  Age: 70 Year
  Sex: Male
  Weight: 73 kg

DRUGS (2)
  1. CYMBALTA [Suspect]
     Indication: PERIPHERAL SENSORY NEUROPATHY
     Dosage: 20 MG DAY
     Dates: start: 20050101
  2. BLOOD PRESSURE DRUGS [Concomitant]

REACTIONS (3)
  - BLOOD PRESSURE INCREASED [None]
  - CONSTIPATION [None]
  - DYSGEUSIA [None]
